FAERS Safety Report 16257509 (Version 1)
Quarter: 2019Q2

REPORT INFORMATION
  Report Type: Spontaneous
  Country: IE (occurrence: IE)
  Receive Date: 20190430
  Receipt Date: 20190430
  Transmission Date: 20190711
  Serious: Yes (Hospitalization)
  Sender: FDA-Public Use
  Company Number: IE-PFIZER INC-2019180457

PATIENT
  Age: 76 Year
  Sex: Female

DRUGS (18)
  1. OXYNORM [Concomitant]
     Active Substance: OXYCODONE HYDROCHLORIDE
     Dosage: 5 MG, AS NEEDED, (EVERY FOUR HOURS, AS NEEDED)
  2. PARACETAMOL [Concomitant]
     Active Substance: ACETAMINOPHEN
     Dosage: 1 G, 3X/DAY (1 GRAM TDS0
  3. BISOPROLOL [Concomitant]
     Active Substance: BISOPROLOL
     Dosage: 2.5 MG, 1X/DAY
  4. ASCORBIC ACID. [Concomitant]
     Active Substance: ASCORBIC ACID
     Dosage: 1 G, 1X/DAY
  5. ELIQUIS [Concomitant]
     Active Substance: APIXABAN
     Indication: ATRIAL FIBRILLATION
     Dosage: 5 MG, 2X/DAY
  6. SALAMOL EASI-BREATHE [Concomitant]
     Active Substance: ALBUTEROL
     Dosage: 2 DF, AS NEEDED
  7. CLOPIDOGREL [Concomitant]
     Active Substance: CLOPIDOGREL BISULFATE
     Dosage: 75 MG, 1X/DAY
  8. CLOTRIMAZOLE. [Concomitant]
     Active Substance: CLOTRIMAZOLE
     Dosage: UNK UNK, 3X/DAY, (1% CREAM TDS)
  9. FERROUS FUMARATE [Concomitant]
     Active Substance: FERROUS FUMARATE
     Dosage: 305 MG, 1X/DAY
  10. CLINDAMYCIN HCL [Suspect]
     Active Substance: CLINDAMYCIN HYDROCHLORIDE
     Indication: CELLULITIS
     Dosage: 450 MG, 4X/DAY
     Route: 048
     Dates: start: 2019, end: 2019
  11. SPIRONOLACTONE. [Concomitant]
     Active Substance: SPIRONOLACTONE
     Dosage: 25 MG, 1X/DAY
  12. IPRAMOL [Concomitant]
     Active Substance: ALBUTEROL SULFATE\IPRATROPIUM BROMIDE
     Dosage: 1 DF, 3X/DAY
  13. PIRITON [Concomitant]
     Active Substance: CHLORPHENIRAMINE MALEATE
     Dosage: 4 MG, TDS, AS NEEDED
  14. CYCLIZINE [Concomitant]
     Active Substance: CYCLIZINE
     Dosage: 50 MG, TDS, AS NEEDED
  15. ROSUVASTATIN. [Concomitant]
     Active Substance: ROSUVASTATIN
     Dosage: 5 MG, UNK, (AT NIGHT)
  16. LACTULOSE. [Concomitant]
     Active Substance: LACTULOSE
     Dosage: 15 ML, 2X/DAY
  17. GLICLAZIDE MR STADA [Concomitant]
     Dosage: 30 MG, 1X/DAY
  18. SENOKOT [Concomitant]
     Active Substance: SENNOSIDES
     Dosage: 15 MG, AT NIGHT

REACTIONS (2)
  - Skin abrasion [Unknown]
  - Rash erythematous [Unknown]

NARRATIVE: CASE EVENT DATE: 20190329
